FAERS Safety Report 15378472 (Version 1)
Quarter: 2018Q3

REPORT INFORMATION
  Report Type: Spontaneous
  Country: US (occurrence: US)
  Receive Date: 20180906
  Receipt Date: 20180906
  Transmission Date: 20181010
  Serious: No
  Sender: FDA-Public Use
  Company Number: None

PATIENT
  Age: 64 Year
  Sex: Female

DRUGS (3)
  1. GABAPENTIN. [Concomitant]
     Active Substance: GABAPENTIN
  2. LEVOTHYROXINE. [Concomitant]
     Active Substance: LEVOTHYROXINE
  3. FORTEO [Suspect]
     Active Substance: TERIPARATIDE
     Dates: start: 20180722

REACTIONS (4)
  - Headache [None]
  - Arthralgia [None]
  - Nausea [None]
  - Pain in extremity [None]

NARRATIVE: CASE EVENT DATE: 20180808
